FAERS Safety Report 7081693-X (Version None)
Quarter: 2010Q4

REPORT INFORMATION
  Report Type: 
  Country: None (occurrence: None)
  Receive Date: 20101103
  Receipt Date: 20101027
  Transmission Date: 20110411
  Serious: Yes (Life-Threatening, Hospitalization)
  Sender: FDA-Public Use
  Company Number: FR-ABBOTT-10P-056-0681690-00

PATIENT
  Sex: Male

DRUGS (2)
  1. DEPAKOTE [Suspect]
     Indication: SCHIZOPHRENIA
     Dosage: 4 TO 5 UNITS PER DAY
     Route: 048
     Dates: start: 20100101, end: 20100101
  2. ZYPREXA [Concomitant]
     Indication: PRODUCT USED FOR UNKNOWN INDICATION

REACTIONS (2)
  - ENCEPHALOPATHY [None]
  - PNEUMONIA ASPIRATION [None]
